FAERS Safety Report 7345725-3 (Version None)
Quarter: 2011Q1

REPORT INFORMATION
  Report Type: 
  Country: None (occurrence: None)
  Receive Date: 20110310
  Receipt Date: 20110228
  Transmission Date: 20110831
  Serious: Yes (Other)
  Sender: FDA-Public Use
  Company Number: US-MYLANLABS-2011S1002586

PATIENT
  Age: 69 Year
  Sex: Female

DRUGS (8)
  1. CRESTOR [Concomitant]
     Indication: BLOOD CHOLESTEROL
  2. ASPIRIN [Concomitant]
  3. TIKOSYN [Concomitant]
     Indication: ATRIAL FIBRILLATION
     Dates: start: 20110101
  4. METOPROLOL TARTRATE [Suspect]
     Indication: BLOOD PRESSURE
     Route: 048
     Dates: start: 20110129, end: 20110202
  5. NIACIN [Concomitant]
  6. METOPROLOL TARTRATE [Suspect]
     Route: 048
     Dates: start: 20110203
  7. WARFARIN [Concomitant]
     Dates: start: 20110101
  8. POTASSIUM [Concomitant]
     Dates: start: 20110101

REACTIONS (3)
  - DRUG INEFFECTIVE [None]
  - BLOOD PRESSURE INCREASED [None]
  - FAECES DISCOLOURED [None]
